FAERS Safety Report 7108943-5 (Version None)
Quarter: 2010Q4

REPORT INFORMATION
  Report Type: 
  Country: None (occurrence: None)
  Receive Date: 20101112
  Receipt Date: 20101026
  Transmission Date: 20110411
  Serious: Yes (Other)
  Sender: FDA-Public Use
  Company Number: 2010AP002289

PATIENT
  Age: 76 Year
  Sex: Female

DRUGS (4)
  1. RISPERIDONE [Suspect]
     Indication: BIPOLAR DISORDER
  2. BECLOMETHASONE DIPROPIONATE [Concomitant]
  3. SALBUTAMOL (SALBUTAMOL) [Concomitant]
  4. SERTRALINE (SERTRALINE) [Concomitant]

REACTIONS (1)
  - FLOPPY IRIS SYNDROME [None]
